FAERS Safety Report 13491139 (Version 1)
Quarter: 2017Q2

REPORT INFORMATION
  Report Type: Spontaneous
  Country: US (occurrence: US)
  Receive Date: 20170427
  Receipt Date: 20170427
  Transmission Date: 20170830
  Serious: No
  Sender: FDA-Public Use
  Company Number: US-LUPIN PHARMACEUTICALS INC.-2016-04498

PATIENT
  Age: 67 Year
  Sex: Female
  Weight: 120.66 kg

DRUGS (1)
  1. ZIPRASIDONE HYDROCHLORIDE CAPSULES, 20 MG [Suspect]
     Active Substance: ZIPRASIDONE HYDROCHLORIDE
     Indication: PRODUCT USED FOR UNKNOWN INDICATION
     Dosage: 40 MG,QD,
     Route: 048
     Dates: start: 2015, end: 20160922

REACTIONS (2)
  - Product physical issue [Unknown]
  - Feeling abnormal [Recovered/Resolved]

NARRATIVE: CASE EVENT DATE: 20160916
